FAERS Safety Report 7447931-6 (Version None)
Quarter: 2011Q2

REPORT INFORMATION
  Report Type: 
  Country: None (occurrence: None)
  Receive Date: 20110429
  Receipt Date: 20110422
  Transmission Date: 20111010
  Serious: Yes (Life-Threatening, Other)
  Sender: FDA-Public Use
  Company Number: JP-ROCHE-689435

PATIENT
  Sex: Male

DRUGS (5)
  1. DECADRON [Suspect]
     Route: 065
  2. CALCIUM LEVOFOLINATE [Concomitant]
     Route: 041
  3. FLUOROURACIL [Concomitant]
     Route: 041
  4. AVASTIN [Suspect]
     Indication: COLON CANCER
     Route: 041
     Dates: start: 20091209, end: 20100224
  5. ELPLAT [Concomitant]
     Route: 041

REACTIONS (3)
  - BACTERIAL INFECTION [None]
  - DUODENAL PERFORATION [None]
  - DISSEMINATED INTRAVASCULAR COAGULATION [None]
